FAERS Safety Report 25860033 (Version 1)
Quarter: 2025Q3

REPORT INFORMATION
  Report Type: Spontaneous
  Country: US (occurrence: None)
  Receive Date: 20250927
  Receipt Date: 20250927
  Transmission Date: 20251021
  Serious: Yes (Other)
  Sender: FDA-CTU
  Company Number: None

PATIENT
  Age: 66 Year
  Sex: Female
  Weight: 40.5 kg

DRUGS (9)
  1. EVENITY [Suspect]
     Active Substance: ROMOSOZUMAB-AQQG
     Indication: Osteoporosis
     Dosage: OTHER QUANTITY : 2 105 MG;?OTHER FREQUENCY : ONCE A MONTH;?
     Route: 058
     Dates: start: 20250924, end: 20250924
  2. CELEBREX [Concomitant]
     Active Substance: CELECOXIB
  3. PEPCID [Concomitant]
     Active Substance: FAMOTIDINE
  4. CLARITIN [Concomitant]
     Active Substance: LORATADINE
  5. IRON [Concomitant]
     Active Substance: IRON
  6. VITAMIN D NOS [Concomitant]
     Active Substance: CHOLECALCIFEROL\ERGOCALCIFEROL
  7. MAGNESIUM [Concomitant]
     Active Substance: MAGNESIUM
  8. CALCIUM [Concomitant]
     Active Substance: CALCIUM
  9. zinc magnesium combo [Concomitant]

REACTIONS (16)
  - Injection site pain [None]
  - Injection site induration [None]
  - Headache [None]
  - Fatigue [None]
  - Myalgia [None]
  - Vestibular migraine [None]
  - Trigeminal neuralgia [None]
  - Pain in extremity [None]
  - Pain in extremity [None]
  - Muscle spasms [None]
  - Arthralgia [None]
  - Nasal congestion [None]
  - Dry throat [None]
  - Feeling cold [None]
  - Musculoskeletal stiffness [None]
  - Neuropathy peripheral [None]

NARRATIVE: CASE EVENT DATE: 20250924
